FAERS Safety Report 5276294-X (Version None)
Quarter: 2007Q1

REPORT INFORMATION
  Report Type: 
  Country: None (occurrence: None)
  Receive Date: 20070326
  Receipt Date: 20070314
  Transmission Date: 20070707
  Serious: Yes (Other)
  Sender: FDA-Public Use
  Company Number: JP-PFIZER INC-2007017370

PATIENT
  Age: 35 Year
  Sex: Female

DRUGS (2)
  1. UNASYN [Suspect]
     Route: 042
  2. DRUG, UNSPECIFIED [Concomitant]
     Route: 042

REACTIONS (1)
  - ENTEROCOLITIS HAEMORRHAGIC [None]
